FAERS Safety Report 6537304-2 (Version None)
Quarter: 2010Q1

REPORT INFORMATION
  Report Type: 
  Country: None (occurrence: None)
  Receive Date: 20100114
  Receipt Date: 20100104
  Transmission Date: 20100710
  Serious: Yes (Hospitalization)
  Sender: FDA-Public Use
  Company Number: US-TEVA-219951USA

PATIENT
  Sex: Male

DRUGS (2)
  1. CLARAVIS [Suspect]
     Indication: ACNE
     Dosage: 20MG AM,20MG PM INCREASED TO 20MG-40MG PM
     Route: 048
     Dates: start: 20090901, end: 20091218
  2. CLARAVIS [Concomitant]

REACTIONS (4)
  - ABDOMINAL DISCOMFORT [None]
  - DECREASED APPETITE [None]
  - HEPATIC CYST [None]
  - WEIGHT INCREASED [None]
